FAERS Safety Report 5911782-1 (Version None)
Quarter: 2008Q4

REPORT INFORMATION
  Report Type: 
  Country: None (occurrence: None)
  Receive Date: 20081008
  Receipt Date: 20080922
  Transmission Date: 20090506
  Serious: Yes (Other)
  Sender: FDA-Public Use
  Company Number: CA-JNJFOC-20080906221

PATIENT
  Age: 50 Year
  Sex: Male
  Weight: 72.58 kg

DRUGS (2)
  1. RALIVIA [Suspect]
     Route: 048
  2. RALIVIA [Suspect]
     Indication: BACK PAIN
     Route: 048

REACTIONS (2)
  - EJACULATION DELAYED [None]
  - EJACULATION FAILURE [None]
